FAERS Safety Report 24792348 (Version 1)
Quarter: 2024Q4

REPORT INFORMATION
  Report Type: Report from Study
  Country: CA (occurrence: CA)
  Receive Date: 20241231
  Receipt Date: 20241231
  Transmission Date: 20250115
  Serious: Yes (Other)
  Sender: RECORDATI
  Company Number: CA-RECORDATI RARE DISEASE INC.-2024010279

PATIENT

DRUGS (1)
  1. SIGNIFOR LAR [Suspect]
     Active Substance: PASIREOTIDE PAMOATE
     Indication: Acromegaly
     Dosage: 60 MG, Q4 WEEKS
     Dates: start: 20230112

REACTIONS (2)
  - Brain neoplasm [Unknown]
  - Brain fog [Unknown]
